FAERS Safety Report 7628908-4 (Version None)
Quarter: 2011Q3

REPORT INFORMATION
  Report Type: 
  Country: None (occurrence: None)
  Receive Date: 20110722
  Receipt Date: 20110720
  Transmission Date: 20111222
  Serious: Yes (Other)
  Sender: FDA-Public Use
  Company Number: US-PFIZER INC-2011161098

PATIENT
  Sex: Female
  Weight: 104 kg

DRUGS (3)
  1. XANAX [Concomitant]
     Dosage: UNK
  2. CHANTIX [Suspect]
     Indication: SMOKING CESSATION THERAPY
     Dosage: 0.5 MG, 1X/DAY
     Route: 048
     Dates: start: 20110701, end: 20110713
  3. LEXAPRO [Concomitant]
     Indication: SYSTEMIC LUPUS ERYTHEMATOSUS
     Dosage: UNK

REACTIONS (5)
  - SOMNOLENCE [None]
  - DEPRESSED MOOD [None]
  - SYSTEMIC LUPUS ERYTHEMATOSUS [None]
  - RASH [None]
  - NAUSEA [None]
